FAERS Safety Report 9499573 (Version 1)
Quarter: 2013Q1

REPORT INFORMATION
  Report Type: Spontaneous
  Country: US (occurrence: None)
  Receive Date: 20130107
  Receipt Date: 20130107
  Transmission Date: 20140127
  Serious: No
  Sender: FDA-Public Use
  Company Number: PHEH2012US022573

PATIENT
  Age: 50 Year
  Sex: Female
  Weight: 74.8 kg

DRUGS (5)
  1. GILENYA ( FTY) CAPSULE, 0.5 MG [Suspect]
     Indication: MULTIPLE SCLEROSIS
     Route: 048
     Dates: start: 20120913
  2. MELOXICAM ( MELOXICAM) TABLET [Concomitant]
  3. AMPYRA ( FAMPRIDINE) TABLET [Concomitant]
  4. FISH OIL ( FISH OIL) CAPSULE [Concomitant]
  5. MULTI-VIT ( VITAMINS NOS) CAPSULE [Concomitant]

REACTIONS (4)
  - Dyskinesia [None]
  - Depressed mood [None]
  - Paraesthesia [None]
  - Headache [None]
